FAERS Safety Report 9312695 (Version 1)
Quarter: 2013Q2

REPORT INFORMATION
  Report Type: Spontaneous
  Country: KR (occurrence: KR)
  Receive Date: 20130528
  Receipt Date: 20130528
  Transmission Date: 20140414
  Serious: Yes (Other)
  Sender: FDA-Public Use
  Company Number: KR-JNJFOC-20130509897

PATIENT
  Age: 8 Year
  Sex: 0

DRUGS (1)
  1. TYLENOL SUSPENSION LIQUID [Suspect]
     Indication: PRODUCT USED FOR UNKNOWN INDICATION
     Route: 048
     Dates: start: 2013

REACTIONS (2)
  - Hypothermia [Recovered/Resolved]
  - Product quality issue [Unknown]
